FAERS Safety Report 12881495 (Version 1)
Quarter: 2016Q4

REPORT INFORMATION
  Report Type: Report from Study
  Country: US (occurrence: US)
  Receive Date: 20161025
  Receipt Date: 20161025
  Transmission Date: 20170207
  Serious: Yes (Hospitalization)
  Sender: FDA-Public Use
  Company Number: US-EISAI MEDICAL RESEARCH-EC-2016-021367

PATIENT
  Age: 67 Year
  Sex: Male
  Weight: 82.8 kg

DRUGS (9)
  1. LEVOTHYROXINE. [Concomitant]
     Active Substance: LEVOTHYROXINE
  2. PEMBROLIZUMAB. [Suspect]
     Active Substance: PEMBROLIZUMAB
     Indication: SQUAMOUS CELL CARCINOMA OF HEAD AND NECK
     Route: 041
     Dates: start: 20160624
  3. MEGESTROL [Concomitant]
     Active Substance: MEGESTROL
  4. MEDICAL MARIJUANA [Concomitant]
     Active Substance: CANNABIS SATIVA SUBSP. INDICA TOP
  5. LISINOPRIL. [Concomitant]
     Active Substance: LISINOPRIL
  6. OMEPRAZOLE. [Concomitant]
     Active Substance: OMEPRAZOLE
  7. OXYCODONE ACETAMINOPHEN [Concomitant]
     Active Substance: ACETAMINOPHEN\OXYCODONE HYDROCHLORIDE
  8. LENVATINIB [Suspect]
     Active Substance: LENVATINIB
     Indication: SQUAMOUS CELL CARCINOMA OF HEAD AND NECK
     Route: 048
     Dates: start: 20160624, end: 2016
  9. LENVATINIB [Suspect]
     Active Substance: LENVATINIB
     Route: 048
     Dates: start: 2016, end: 20161015

REACTIONS (5)
  - Dyspnoea [Unknown]
  - Hypertension [Recovered/Resolved]
  - Epistaxis [Recovered/Resolved]
  - Angina pectoris [Unknown]
  - Urinary retention [Recovering/Resolving]

NARRATIVE: CASE EVENT DATE: 20160707
